FAERS Safety Report 15277736 (Version 1)
Quarter: 2018Q3

REPORT INFORMATION
  Report Type: Spontaneous
  Country: NL (occurrence: NL)
  Receive Date: 20180814
  Receipt Date: 20180814
  Transmission Date: 20181010
  Serious: Yes (Hospitalization)
  Sender: FDA-Public Use
  Company Number: NL-TEVA-2018-NL-940193

PATIENT

DRUGS (3)
  1. OXALIPLATIN. [Suspect]
     Active Substance: OXALIPLATIN
     Indication: COLORECTAL CANCER
     Dosage: MOST RECENT DOSE PRIOR TO SAE WAS ON : 13/JUL/2016
     Route: 042
     Dates: start: 20160519
  2. 5?FU [Suspect]
     Active Substance: FLUOROURACIL
     Indication: COLORECTAL CANCER
     Dosage: MOST RECENT DOSE PRIOR TO SAE WAS ON : 13/JUL/2016
     Route: 042
     Dates: start: 20160519
  3. AVASTIN [Suspect]
     Active Substance: BEVACIZUMAB
     Indication: COLORECTAL CANCER
     Dosage: MOST RECENT DOSE PRIOR TO SAE WAS ON : 13/JUL/2016
     Route: 042
     Dates: start: 20160519

REACTIONS (1)
  - Device related infection [Recovered/Resolved]

NARRATIVE: CASE EVENT DATE: 20160814
